FAERS Safety Report 11296095 (Version 1)
Quarter: 2015Q3

REPORT INFORMATION
  Report Type: Spontaneous
  Country: US (occurrence: US)
  Receive Date: 20150722
  Receipt Date: 20150722
  Transmission Date: 20151125
  Serious: No
  Sender: FDA-Public Use
  Company Number: US-ELI_LILLY_AND_COMPANY-US201003004671

PATIENT
  Sex: Female

DRUGS (1)
  1. EVISTA [Suspect]
     Active Substance: RALOXIFENE HYDROCHLORIDE
     Indication: OSTEOPOROSIS
     Dosage: 60 MG, DAILY (1/D)
     Dates: start: 1992, end: 2006

REACTIONS (3)
  - Sciatica [Unknown]
  - Drug ineffective [Unknown]
  - Muscle spasms [Unknown]
